FAERS Safety Report 9215595 (Version 2)
Quarter: 2013Q2

REPORT INFORMATION
  Report Type: Spontaneous
  Country: US (occurrence: US)
  Receive Date: 20130408
  Receipt Date: 20130529
  Transmission Date: 20140414
  Serious: No
  Sender: FDA-Public Use
  Company Number: US-009507513-1304USA000072

PATIENT
  Age: 22 Year
  Sex: Female

DRUGS (2)
  1. NUVARING [Suspect]
     Indication: CONTRACEPTION
     Dosage: 1 DF, 3 WEEKS IN, 1 WEEK OUT
     Route: 067
     Dates: start: 201301
  2. ADDERALL TABLETS [Concomitant]

REACTIONS (1)
  - Menorrhagia [Unknown]
